FAERS Safety Report 17839957 (Version 1)
Quarter: 2020Q2

REPORT INFORMATION
  Report Type: Spontaneous
  Country: US (occurrence: US)
  Receive Date: 20200529
  Receipt Date: 20200529
  Transmission Date: 20200714
  Serious: Yes (Hospitalization, Other)
  Sender: FDA-Public Use
  Company Number: US-SUNOVION-2020SUN001586

PATIENT
  Age: 85 Year
  Sex: Male

DRUGS (1)
  1. LONHALA MAGNAIR [Suspect]
     Active Substance: GLYCOPYRROLATE
     Dosage: 25 ?G
     Route: 055

REACTIONS (5)
  - Vascular operation [Unknown]
  - Coronary artery disease [Unknown]
  - Cardiac disorder [Unknown]
  - Dyspnoea [Unknown]
  - Medical device implantation [Unknown]
